FAERS Safety Report 5202048-6 (Version None)
Quarter: 2007Q1

REPORT INFORMATION
  Report Type: 
  Country: None (occurrence: None)
  Receive Date: 20070109
  Receipt Date: 20061229
  Transmission Date: 20070707
  Serious: Yes (Other)
  Sender: FDA-Public Use
  Company Number: PHHO2006ES22003

PATIENT
  Age: 61 Year

DRUGS (2)
  1. ZOLEDRONIC ACID [Suspect]
     Dosage: 4 MG,
     Route: 042
     Dates: start: 20040326, end: 20060717
  2. FEMARA [Suspect]
     Indication: BREAST CANCER
     Dosage: 2.5 MG, QD
     Route: 048
     Dates: start: 20040326, end: 20060717

REACTIONS (1)
  - OSTEONECROSIS [None]
